FAERS Safety Report 7034054-3 (Version None)
Quarter: 2010Q4

REPORT INFORMATION
  Report Type: 
  Country: None (occurrence: None)
  Receive Date: 20101006
  Receipt Date: 20100928
  Transmission Date: 20110411
  Serious: Yes (Other)
  Sender: FDA-Public Use
  Company Number: 018257

PATIENT
  Sex: Male
  Weight: 3.6 kg

DRUGS (2)
  1. VIMPAT [Suspect]
     Indication: EPILEPSY
     Dosage: (200 DAILY TRANSPLACENTAL)
     Route: 064
     Dates: start: 20100125, end: 20100811
  2. LAMOTRIGINE [Concomitant]

REACTIONS (7)
  - AORTIC VALVE STENOSIS [None]
  - CAESAREAN SECTION [None]
  - HEART SOUNDS ABNORMAL [None]
  - HEPATIC ENZYME ABNORMAL [None]
  - HEPATIC ENZYME INCREASED [None]
  - JAUNDICE [None]
  - MATERNAL DRUGS AFFECTING FOETUS [None]
